FAERS Safety Report 7571557-7 (Version None)
Quarter: 2011Q2

REPORT INFORMATION
  Report Type: 
  Country: None (occurrence: None)
  Receive Date: 20110624
  Receipt Date: 20100505
  Transmission Date: 20111010
  Serious: Yes (Hospitalization)
  Sender: FDA-Public Use
  Company Number: US-JNJFOC-20110603749

PATIENT
  Age: 9 Month
  Sex: Male
  Weight: 9.53 kg

DRUGS (4)
  1. CONCENTRATED TYLENOL INFANT DROPS [Suspect]
     Indication: PYREXIA
     Route: 048
     Dates: start: 20100413, end: 20100429
  2. CONCENTRATED MOTRIN INFANTS DROPS [Suspect]
     Route: 048
  3. CONCENTRATED MOTRIN INFANTS DROPS [Suspect]
     Indication: PYREXIA
     Route: 048
     Dates: start: 20100413, end: 20100419
  4. CONCENTRATED TYLENOL INFANT DROPS [Suspect]
     Route: 048

REACTIONS (2)
  - PRODUCT QUALITY ISSUE [None]
  - HYPERSENSITIVITY [None]
